FAERS Safety Report 4829341-0 (Version None)
Quarter: 2005Q4

REPORT INFORMATION
  Report Type: 
  Country: None (occurrence: None)
  Receive Date: 20051116
  Receipt Date: 20051110
  Transmission Date: 20060501
  Serious: Yes (Life-Threatening, Congenital Anomaly)
  Sender: FDA-Public Use
  Company Number: 2005SE06487

PATIENT
  Age: 1 Day
  Sex: Female
  Weight: 2 kg

DRUGS (3)
  1. BLOPRESS [Suspect]
     Indication: HYPERTENSION
     Route: 064
  2. EBRANTIL [Concomitant]
     Indication: HYPERTENSION
     Route: 064
  3. HYDROCHLOROTHIAZIDE [Concomitant]
     Indication: HYPERTENSION
     Route: 064

REACTIONS (9)
  - CAESAREAN SECTION [None]
  - CHORIOAMNIONITIS [None]
  - DRUG EXPOSURE DURING PREGNANCY [None]
  - ELECTROENCEPHALOGRAM ABNORMAL [None]
  - KIDNEY MALFORMATION [None]
  - NEONATAL ASPHYXIA [None]
  - PATENT DUCTUS ARTERIOSUS [None]
  - RENAL DYSPLASIA [None]
  - ULTRASOUND KIDNEY ABNORMAL [None]
